FAERS Safety Report 13142024 (Version 2)
Quarter: 2017Q2

REPORT INFORMATION
  Report Type: Report from Study
  Country: US (occurrence: US)
  Receive Date: 20170124
  Receipt Date: 20170428
  Transmission Date: 20170830
  Serious: Yes (Hospitalization)
  Sender: FDA-Public Use
  Company Number: US-JNJFOC-20170110564

PATIENT
  Age: 24 Year
  Sex: Male
  Weight: 96.4 kg

DRUGS (2)
  1. APAP [Suspect]
     Active Substance: ACETAMINOPHEN
     Indication: PRODUCT USED FOR UNKNOWN INDICATION
     Dosage: 100 UNITS (DOSES UNSPECIFIED)
     Route: 048
     Dates: start: 201701
  2. APAP [Suspect]
     Active Substance: ACETAMINOPHEN
     Route: 048

REACTIONS (7)
  - Dehydration [Recovered/Resolved]
  - Acute kidney injury [Recovered/Resolved]
  - Intentional overdose [Recovered/Resolved]
  - Abdominal pain [Recovered/Resolved]
  - Suicide attempt [Recovered/Resolved]
  - Vomiting [Recovered/Resolved]
  - Renal tubular necrosis [Recovered/Resolved]

NARRATIVE: CASE EVENT DATE: 201701
